FAERS Safety Report 9262097 (Version 1)
Quarter: 2013Q2

REPORT INFORMATION
  Report Type: Spontaneous
  Country: US (occurrence: US)
  Receive Date: 20130430
  Receipt Date: 20130430
  Transmission Date: 20140414
  Serious: Yes (Other)
  Sender: FDA-Public Use
  Company Number: US-AMGEN-USASP2013029176

PATIENT
  Age: 54 Year
  Sex: Female
  Weight: 102.4 kg

DRUGS (8)
  1. ENBREL [Suspect]
     Indication: PRODUCT USED FOR UNKNOWN INDICATION
     Dosage: 25 MG, QWK
     Route: 058
     Dates: start: 201206, end: 201209
  2. PREDNISONE [Concomitant]
     Dosage: 1 MG, UNK
  3. TERBUTALINE [Concomitant]
     Dosage: 5 MG, UNK
  4. THEOPHYLLINE [Concomitant]
     Dosage: 200 MG, ER
  5. CALCIUM 500+D [Concomitant]
     Dosage: UNK
  6. NASACORT AQ [Concomitant]
     Dosage: AER 55 MCG/AC
  7. MUCINEX COUGH [Concomitant]
     Dosage: 5-100 MG
  8. BENADRYL                           /00000402/ [Concomitant]
     Dosage: 25 MG, UNK

REACTIONS (2)
  - Pneumonia [Unknown]
  - Lung infection [Unknown]
